FAERS Safety Report 9807133 (Version 1)
Quarter: 2014Q1

REPORT INFORMATION
  Report Type: Spontaneous
  Country: AU (occurrence: AU)
  Receive Date: 20140110
  Receipt Date: 20140110
  Transmission Date: 20141002
  Serious: Yes (Other)
  Sender: FDA-Public Use
  Company Number: AU-JNJFOC-20140101960

PATIENT
  Sex: Female

DRUGS (1)
  1. NICORETTE FRESHFRUIT 4MG GUM [Suspect]
     Indication: SMOKING CESSATION THERAPY
     Route: 002

REACTIONS (4)
  - Dyspepsia [Unknown]
  - Dyspnoea [Unknown]
  - Incorrect dose administered [Unknown]
  - Nausea [Unknown]
